FAERS Safety Report 6258785-8 (Version None)
Quarter: 2009Q3

REPORT INFORMATION
  Report Type: 
  Country: None (occurrence: None)
  Receive Date: 20090702
  Receipt Date: 20090624
  Transmission Date: 20100115
  Serious: Yes (Other)
  Sender: FDA-Public Use
  Company Number: CIP09001674

PATIENT
  Age: 50 Year
  Sex: Female

DRUGS (1)
  1. ACTONEL [Suspect]
     Indication: OSTEOPENIA
     Dosage: 150 MG ONCE MONTHLY, ORAL
     Route: 048
     Dates: start: 20080101, end: 20090501

REACTIONS (3)
  - DIARRHOEA [None]
  - HYPOTENSION [None]
  - NAUSEA [None]
